FAERS Safety Report 17299530 (Version 1)
Quarter: 2020Q1

REPORT INFORMATION
  Report Type: Spontaneous
  Country: US (occurrence: US)
  Receive Date: 20200121
  Receipt Date: 20200121
  Transmission Date: 20200409
  Serious: Yes (Hospitalization)
  Sender: FDA-Public Use
  Company Number: None

PATIENT
  Age: 35 Year
  Sex: Female
  Weight: 66.6 kg

DRUGS (4)
  1. MESALAMINE DR TABS 1.2GM [Suspect]
     Active Substance: MESALAMINE
     Indication: PROCTITIS ULCERATIVE
     Dosage: ?          QUANTITY:60 TABLET(S);?
     Route: 048
     Dates: end: 20200107
  2. RAINBOW LIGHT PRENATAL ONE [Concomitant]
  3. BIRTH CONTROL HEAY=THER 0.35 MG [Concomitant]
  4. IWI DHA SOFTGEL [Concomitant]

REACTIONS (2)
  - Pancreatitis [None]
  - Migraine [None]

NARRATIVE: CASE EVENT DATE: 20191201
